FAERS Safety Report 9135773 (Version 1)
Quarter: 2013Q1

REPORT INFORMATION
  Report Type: Spontaneous
  Country: US (occurrence: US)
  Receive Date: 20130304
  Receipt Date: 20130304
  Transmission Date: 20140127
  Serious: Yes (Hospitalization, Other)
  Sender: FDA-Public Use
  Company Number: PHEH2013US004665

PATIENT
  Sex: Female

DRUGS (1)
  1. GLEEVEC [Suspect]
     Indication: CHRONIC MYELOID LEUKAEMIA
     Dosage: 400 MG, QD
     Route: 048

REACTIONS (13)
  - Cellulitis [Unknown]
  - Glomerulonephritis membranous [Unknown]
  - Type 2 diabetes mellitus [Unknown]
  - Skin cancer [Unknown]
  - Second primary malignancy [Unknown]
  - Scoliosis [Unknown]
  - Intervertebral disc degeneration [Unknown]
  - Spinal column stenosis [Unknown]
  - Restless legs syndrome [Unknown]
  - Arthritis [Unknown]
  - Hyperlipidaemia [Unknown]
  - Hyperthyroidism [Unknown]
  - Sciatica [Unknown]
